FAERS Safety Report 12357617 (Version 3)
Quarter: 2016Q2

REPORT INFORMATION
  Report Type: Report from Study
  Country: US (occurrence: US)
  Receive Date: 20160512
  Receipt Date: 20160607
  Transmission Date: 20160815
  Serious: Yes (Other)
  Sender: FDA-Public Use
  Company Number: US-GILEAD-2016-0212935

PATIENT
  Age: 54 Year
  Sex: Female

DRUGS (2)
  1. VELETRI [Concomitant]
     Active Substance: EPOPROSTENOL
  2. AMBRISENTAN [Suspect]
     Active Substance: AMBRISENTAN
     Indication: PRODUCT USED FOR UNKNOWN INDICATION
     Dosage: 10 MG, QD
     Route: 065
     Dates: start: 20120508

REACTIONS (4)
  - Pain in extremity [Unknown]
  - Central venous catheterisation [Unknown]
  - Abdominal discomfort [Unknown]
  - Rash [Unknown]

NARRATIVE: CASE EVENT DATE: 201605
